FAERS Safety Report 5779124-2 (Version None)
Quarter: 2008Q2

REPORT INFORMATION
  Report Type: 
  Country: None (occurrence: None)
  Receive Date: 20080617
  Receipt Date: 20080606
  Transmission Date: 20081010
  Serious: Yes (Hospitalization)
  Sender: FDA-Public Use
  Company Number: 2008BI012192

PATIENT
  Age: 38 Year
  Sex: Female
  Weight: 79.3795 kg

DRUGS (1)
  1. AVONEX [Suspect]
     Indication: MULTIPLE SCLEROSIS
     Dosage: 30 UG; QW; IM
     Route: 030
     Dates: start: 20080218

REACTIONS (6)
  - ABDOMINOPLASTY [None]
  - CHEST PAIN [None]
  - DYSPNOEA [None]
  - FEELING HOT [None]
  - INFLUENZA LIKE ILLNESS [None]
  - SEASONAL ALLERGY [None]
